FAERS Safety Report 12823442 (Version 2)
Quarter: 2016Q4

REPORT INFORMATION
  Report Type: Spontaneous
  Country: US (occurrence: US)
  Receive Date: 20161007
  Receipt Date: 20161027
  Transmission Date: 20170207
  Serious: No
  Sender: FDA-Public Use
  Company Number: US-HORIZON-ACT-0230-2016

PATIENT
  Age: 19 Year
  Sex: Male

DRUGS (6)
  1. TEMOVATE CREAM [Concomitant]
  2. TENORMIN [Concomitant]
     Active Substance: ATENOLOL
  3. BACTRIM [Concomitant]
     Active Substance: SULFAMETHOXAZOLE\TRIMETHOPRIM
  4. ACTIMMUNE [Suspect]
     Active Substance: INTERFERON GAMMA-1B
     Indication: CHRONIC GRANULOMATOUS DISEASE
     Dosage: 84 ?G, THREE TIMES WEEKLY
     Route: 058
     Dates: start: 20130715
  5. CALCIUM ANTACID [Concomitant]
     Active Substance: CALCIUM CARBONATE
  6. ITRACONAZOLE. [Concomitant]
     Active Substance: ITRACONAZOLE

REACTIONS (2)
  - Malaise [Unknown]
  - Ill-defined disorder [Unknown]
